FAERS Safety Report 23252862 (Version 1)
Quarter: 2023Q4

REPORT INFORMATION
  Report Type: Spontaneous
  Country: AT (occurrence: None)
  Receive Date: 20231201
  Receipt Date: 20231201
  Transmission Date: 20240109
  Serious: Yes (Death, Other)
  Sender: FDA-Public Use
  Company Number: 2023A201432

PATIENT
  Age: 54 Year
  Sex: Female
  Weight: 94 kg

DRUGS (2)
  1. LYNPARZA [Suspect]
     Active Substance: OLAPARIB
     Indication: Ovarian neoplasm
     Route: 048
     Dates: start: 202003, end: 202109
  2. LYNPARZA [Suspect]
     Active Substance: OLAPARIB
     Indication: Ovarian neoplasm
     Route: 048
     Dates: start: 202207, end: 202209

REACTIONS (7)
  - Acute myeloid leukaemia [Fatal]
  - Cerebral haemorrhage [Fatal]
  - Intracranial mass [Fatal]
  - Thrombocytopenia [Fatal]
  - Pancytopenia [Unknown]
  - Metastases to liver [Unknown]
  - Myelodysplastic syndrome [Unknown]

NARRATIVE: CASE EVENT DATE: 20220407
